FAERS Safety Report 9237926 (Version 1)
Quarter: 2013Q2

REPORT INFORMATION
  Report Type: Spontaneous
  Country: KR (occurrence: None)
  Receive Date: 20130415
  Receipt Date: 20130415
  Transmission Date: 20140414
  Serious: Yes (Other)
  Sender: FDA-Public Use
  Company Number: KR-MACLEODS PHARMA-000084

PATIENT
  Sex: Male

DRUGS (2)
  1. DONEPEZIL (DONEPEZIL) [Suspect]
     Indication: COGNITIVE DISORDER
     Dosage: 1.0 DAYS/
  2. RISPERIDONE [Suspect]
     Indication: DELUSION
     Dosage: 1.0 DAYS/?

REACTIONS (6)
  - Bradykinesia [None]
  - Tremor [None]
  - Sleep disorder [None]
  - Gait disturbance [None]
  - Activities of daily living impaired [None]
  - Parkinsonism [None]
